FAERS Safety Report 8230342-3 (Version None)
Quarter: 2012Q1

REPORT INFORMATION
  Report Type: 
  Country: None (occurrence: None)
  Receive Date: 20120323
  Receipt Date: 20120313
  Transmission Date: 20120608
  Serious: Yes (Hospitalization, Other)
  Sender: FDA-Public Use
  Company Number: SK-BAYER-201042138GPV

PATIENT
  Sex: Female

DRUGS (1)
  1. MIRENA [Suspect]
     Dosage: 20 ?G (DAILY DOSE), CONT, INTRA-UTERINE
     Route: 015
     Dates: start: 20090601

REACTIONS (4)
  - POST PROCEDURAL HAEMORRHAGE [None]
  - DEVICE DISLOCATION [None]
  - PNEUMONIA [None]
  - PREGNANCY WITH CONTRACEPTIVE DEVICE [None]
